FAERS Safety Report 7023281-7 (Version None)
Quarter: 2010Q3

REPORT INFORMATION
  Report Type: 
  Country: None (occurrence: None)
  Receive Date: 20100916
  Receipt Date: 20100716
  Transmission Date: 20110219
  Serious: No
  Sender: FDA-Public Use
  Company Number: DKLU1063672

PATIENT
  Age: 12 Year
  Sex: Female

DRUGS (4)
  1. SABRIL [Suspect]
     Indication: CONVULSION
     Dosage: ORAL; 125 MG MILLIGRAM(S), 3 IN 1 D, ORAL
     Route: 048
     Dates: start: 20100526, end: 20100701
  2. SABRIL [Suspect]
     Indication: CONVULSION
     Dosage: ORAL; 125 MG MILLIGRAM(S), 3 IN 1 D, ORAL
     Route: 048
     Dates: start: 20090101
  3. CLONAZEPAM [Concomitant]
  4. DEPAKOTE [Concomitant]

REACTIONS (2)
  - ERYTHEMA [None]
  - OEDEMA PERIPHERAL [None]
